FAERS Safety Report 4625528-0 (Version None)
Quarter: 2005Q2

REPORT INFORMATION
  Report Type: 
  Country: None (occurrence: None)
  Receive Date: 20050401
  Receipt Date: 20050311
  Transmission Date: 20051028
  Serious: Yes (Hospitalization)
  Sender: FDA-Public Use
  Company Number: FR-ABBOTT-05P-056-0294370-00

PATIENT
  Age: 41 Year
  Sex: Male

DRUGS (6)
  1. KALETRA [Suspect]
     Indication: HIV INFECTION
     Route: 048
     Dates: end: 20040429
  2. DEPAKENE [Suspect]
     Indication: CEREBRAL TOXOPLASMOSIS
     Dates: start: 20030101, end: 20040429
  3. DIDANOSINE [Suspect]
     Indication: HIV INFECTION
     Route: 048
     Dates: end: 20040429
  4. VIREAD [Suspect]
     Indication: HIV INFECTION
     Dosage: 245 MG DOSE
     Route: 048
     Dates: end: 20040429
  5. SULFADIAZINE [Concomitant]
     Indication: CEREBRAL TOXOPLASMOSIS
     Route: 048
     Dates: start: 20030101
  6. PYRIMETHAMINE [Concomitant]
     Indication: CEREBRAL TOXOPLASMOSIS
     Route: 048
     Dates: start: 20030101

REACTIONS (6)
  - DYSPHAGIA [None]
  - GENERAL PHYSICAL HEALTH DETERIORATION [None]
  - PANCREATITIS ACUTE [None]
  - RENAL FAILURE ACUTE [None]
  - TACHYPNOEA [None]
  - WEIGHT DECREASED [None]
